FAERS Safety Report 5771393-8 (Version None)
Quarter: 2008Q2

REPORT INFORMATION
  Report Type: 
  Country: None (occurrence: None)
  Receive Date: 20080613
  Receipt Date: 20080602
  Transmission Date: 20081010
  Serious: Yes (Hospitalization)
  Sender: FDA-Public Use
  Company Number: AT-JNJFOC-20080600554

PATIENT
  Age: 54 Year
  Sex: Female
  Weight: 51 kg

DRUGS (8)
  1. REMICADE [Suspect]
     Route: 042
  2. REMICADE [Suspect]
     Indication: CROHN'S DISEASE
     Route: 042
  3. EUTHYROX [Concomitant]
     Indication: HYPOTHYROIDISM
  4. RABEPRAZOLE SODIUM [Concomitant]
     Indication: GASTRITIS
  5. SEROPRAM [Concomitant]
     Indication: DEPRESSION
  6. LISINOPRIL [Concomitant]
     Indication: HYPERTENSION
  7. ENTOCORT EC [Concomitant]
     Indication: CROHN'S DISEASE
  8. METHOHEXAL [Concomitant]
     Indication: HYPERTENSION

REACTIONS (3)
  - EXOPHTHALMOS [None]
  - EYE PAIN [None]
  - HYPERTENSIVE CRISIS [None]
